FAERS Safety Report 5157693-3 (Version None)
Quarter: 2006Q4

REPORT INFORMATION
  Report Type: 
  Country: None (occurrence: None)
  Receive Date: 20061115
  Receipt Date: 20061031
  Transmission Date: 20070319
  Serious: Yes (Hospitalization)
  Sender: FDA-Public Use
  Company Number: SPV1-2006-01564

PATIENT
  Age: 36 Year
  Sex: Male

DRUGS (1)
  1. PENTASA [Suspect]
     Dosage: 750 MG 3X'S DAILY, ORAL
     Route: 048
     Dates: start: 20060404, end: 20061007

REACTIONS (1)
  - INTERSTITIAL LUNG DISEASE [None]
